FAERS Safety Report 22399526 (Version 1)
Quarter: 2023Q2

REPORT INFORMATION
  Report Type: Spontaneous
  Country: KR (occurrence: KR)
  Receive Date: 20230602
  Receipt Date: 20230602
  Transmission Date: 20230721
  Serious: Yes (Life-Threatening, Other)
  Sender: FDA-Public Use
  Company Number: KR-MYLANLABS-2023M1056939

PATIENT
  Age: 71 Year
  Sex: Female

DRUGS (5)
  1. CELEBREX [Suspect]
     Active Substance: CELECOXIB
     Indication: Spinal stenosis
     Dosage: 1 DOSAGE FORM, QD
     Route: 048
     Dates: start: 20190402, end: 20190402
  2. ACETAMINOPHEN [Suspect]
     Active Substance: ACETAMINOPHEN
     Indication: Ingrowing nail
     Dosage: 1 DOSAGE FORM, QD
     Route: 048
     Dates: start: 20190402, end: 20190402
  3. RANITIDINE HYDROCHLORIDE [Suspect]
     Active Substance: RANITIDINE HYDROCHLORIDE
     Indication: Spinal stenosis
     Dosage: 1 DOSAGE FORM, QD
     Route: 048
     Dates: start: 20190402, end: 20190402
  4. HERBALS\VITIS VINIFERA LEAF [Suspect]
     Active Substance: HERBALS\VITIS VINIFERA LEAF
     Indication: Product used for unknown indication
     Dosage: 150 MILLIGRAM, QD
     Route: 048
     Dates: start: 20190402, end: 20190402
  5. AFLOQUALONE [Suspect]
     Active Substance: AFLOQUALONE
     Indication: Spinal stenosis
     Dosage: 1 DOSAGE FORM, QD
     Route: 048
     Dates: start: 20190402, end: 20190402

REACTIONS (6)
  - Simple partial seizures [Recovering/Resolving]
  - Chest pain [Recovering/Resolving]
  - Skin discolouration [Recovering/Resolving]
  - Diarrhoea [Recovering/Resolving]
  - Dizziness [Recovering/Resolving]
  - Off label use [Unknown]

NARRATIVE: CASE EVENT DATE: 20190402
